FAERS Safety Report 9846125 (Version 5)
Quarter: 2014Q2

REPORT INFORMATION
  Report Type: Report from Study
  Country: FI (occurrence: FI)
  Receive Date: 20140127
  Receipt Date: 20140527
  Transmission Date: 20141212
  Serious: Yes (Other)
  Sender: FDA-Public Use
  Company Number: FI-NOVOPROD-394820

PATIENT
  Age: 66 Year
  Sex: Male
  Weight: 99.1 kg

DRUGS (2)
  1. LIRAGLUTIDE FLEXPEN [Suspect]
     Indication: TYPE 2 DIABETES MELLITUS
     Dosage: 1.2,,QD
     Route: 058
     Dates: start: 20110830, end: 20131017
  2. LIRAGLUTIDE FLEXPEN [Suspect]
     Dosage: 1.2 MG, QD
     Route: 058
     Dates: start: 20131022

REACTIONS (1)
  - Transient ischaemic attack [Recovered/Resolved]
